FAERS Safety Report 4396798-1 (Version None)
Quarter: 2004Q3

REPORT INFORMATION
  Report Type: 
  Country: None (occurrence: None)
  Receive Date: 20040714
  Receipt Date: 20040521
  Transmission Date: 20050211
  Serious: Yes (Other)
  Sender: FDA-Public Use
  Company Number: PHBS2004JP06906

PATIENT
  Age: 39 Year
  Sex: Female

DRUGS (1)
  1. CAFERGOT [Suspect]
     Indication: MIGRAINE
     Dosage: 1 TABLET/D
     Route: 048
     Dates: start: 20040501

REACTIONS (2)
  - MIGRAINE [None]
  - RETINAL VEIN OCCLUSION [None]
